FAERS Safety Report 24227089 (Version 1)
Quarter: 2024Q3

REPORT INFORMATION
  Report Type: Spontaneous
  Country: CA (occurrence: None)
  Receive Date: 20240820
  Receipt Date: 20240820
  Transmission Date: 20241016
  Serious: Yes (Other)
  Sender: ORION
  Company Number: CA-PFIZER INC-202400237493

PATIENT

DRUGS (8)
  1. METHOTREXATE [Suspect]
     Active Substance: METHOTREXATE
     Indication: Colitis ulcerative
  2. METHOTREXATE [Suspect]
     Active Substance: METHOTREXATE
     Indication: Crohn^s disease
  3. ADALIMUMAB [Suspect]
     Active Substance: ADALIMUMAB
     Indication: Colitis ulcerative
  4. ADALIMUMAB [Suspect]
     Active Substance: ADALIMUMAB
     Indication: Crohn^s disease
  5. INFLIXIMAB [Suspect]
     Active Substance: INFLIXIMAB
     Indication: Crohn^s disease
  6. INFLIXIMAB [Suspect]
     Active Substance: INFLIXIMAB
     Indication: Colitis ulcerative
  7. AZATHIOPRINE [Suspect]
     Active Substance: AZATHIOPRINE
     Indication: Colitis ulcerative
  8. AZATHIOPRINE [Suspect]
     Active Substance: AZATHIOPRINE
     Indication: Crohn^s disease

REACTIONS (19)
  - Product use in unapproved indication [Unknown]
  - Therapeutic response decreased [Unknown]
  - Adverse drug reaction [Unknown]
  - Cervical dysplasia [Unknown]
  - Clostridium difficile infection [Unknown]
  - Cytopenia [Unknown]
  - Drug specific antibody present [Unknown]
  - Folliculitis [Unknown]
  - Hepatotoxicity [Unknown]
  - Herpes zoster [Unknown]
  - Nausea [Unknown]
  - Oesophageal candidiasis [Unknown]
  - Paradoxical psoriasis [Unknown]
  - Peritonsillar abscess [Unknown]
  - Pneumonia [Unknown]
  - Rash [Unknown]
  - Serum sickness [Unknown]
  - Upper respiratory tract infection [Unknown]
  - Urinary tract infection [Unknown]
